FAERS Safety Report 22382348 (Version 1)
Quarter: 2023Q2

REPORT INFORMATION
  Report Type: Spontaneous
  Country: US (occurrence: US)
  Receive Date: 20230530
  Receipt Date: 20230530
  Transmission Date: 20230722
  Serious: No
  Sender: FDA-Public Use
  Company Number: US-AMGEN-USASP2023091035

PATIENT
  Sex: Male

DRUGS (9)
  1. OTEZLA [Suspect]
     Active Substance: APREMILAST
     Indication: Dermatitis atopic
     Dosage: 10/20/30, TITRATE STARTER/28DAY TITR PACK
     Route: 048
  2. OTEZLA [Suspect]
     Active Substance: APREMILAST
     Indication: Psoriasis
  3. FISH OIL [Concomitant]
     Active Substance: FISH OIL
  4. IBUPROFEN [Concomitant]
     Active Substance: IBUPROFEN
  5. LEVOTHYROXINE [Concomitant]
     Active Substance: LEVOTHYROXINE
  6. VITAMIN D NOS [Concomitant]
     Active Substance: VITAMIN D NOS
  7. QUETIAPINE [Concomitant]
     Active Substance: QUETIAPINE
  8. VITAMIN D3 [Concomitant]
     Active Substance: CHOLECALCIFEROL
  9. VITAMIN C [Concomitant]
     Active Substance: ASCORBIC ACID

REACTIONS (1)
  - Product dose omission issue [Unknown]
